FAERS Safety Report 6851289-0 (Version None)
Quarter: 2010Q3

REPORT INFORMATION
  Report Type: 
  Country: None (occurrence: None)
  Receive Date: 20100717
  Receipt Date: 20080115
  Transmission Date: 20110219
  Serious: No
  Sender: FDA-Public Use
  Company Number: US-PFIZER INC-2008005204

PATIENT
  Age: 56 Year
  Sex: Male

DRUGS (6)
  1. CHANTIX [Suspect]
  2. XANAX [Concomitant]
  3. SPIRIVA [Concomitant]
  4. SEREVENT [Concomitant]
  5. COMBIVENT [Concomitant]
  6. ALBUTEROL [Concomitant]

REACTIONS (1)
  - ERECTILE DYSFUNCTION [None]
